FAERS Safety Report 20389310 (Version 1)
Quarter: 2022Q1

REPORT INFORMATION
  Report Type: Spontaneous
  Country: US (occurrence: US)
  Receive Date: 20220128
  Receipt Date: 20220128
  Transmission Date: 20220423
  Serious: No
  Sender: FDA-Public Use
  Company Number: US-ALLERGAN-2111128US

PATIENT
  Age: 42 Year
  Sex: Female

DRUGS (5)
  1. BOTOX [Suspect]
     Active Substance: ONABOTULINUMTOXINA
     Indication: Skin wrinkling
     Dosage: 6 UNITS, SINGLE
     Dates: start: 20210224, end: 20210224
  2. BOTOX [Suspect]
     Active Substance: ONABOTULINUMTOXINA
     Indication: Skin wrinkling
     Dosage: 24 UNITS, SINGLE
     Dates: start: 20210224, end: 20210224
  3. BOTOX [Suspect]
     Active Substance: ONABOTULINUMTOXINA
     Indication: Skin wrinkling
     Dosage: 20 UNITS, SINGLE
     Dates: start: 20210224, end: 20210224
  4. JUVEDERM VOLUMA XC [Suspect]
     Active Substance: HYALURONIC ACID\LIDOCAINE HYDROCHLORIDE
     Indication: Skin wrinkling
     Dosage: 1 DF, SINGLE
     Dates: start: 20210224, end: 20210224
  5. JUVEDERM ULTRA [Suspect]
     Active Substance: HYALURONIC ACID
     Indication: Lip cosmetic procedure
     Dosage: 1 DF, SINGLE
     Dates: start: 20210224, end: 20210224

REACTIONS (5)
  - Injection site injury [Unknown]
  - Pallor [Unknown]
  - Skin mass [Unknown]
  - Post procedural complication [Recovered/Resolved]
  - Injection site bruising [Recovered/Resolved]

NARRATIVE: CASE EVENT DATE: 20210224
